FAERS Safety Report 21321691 (Version 2)
Quarter: 2022Q3

REPORT INFORMATION
  Report Type: Report from Study
  Country: US (occurrence: None)
  Receive Date: 20220912
  Receipt Date: 20220916
  Transmission Date: 20221027
  Serious: Yes (Death, Life-Threatening, Hospitalization)
  Sender: FDA-Public Use
  Company Number: US-ROCHE-3175646

PATIENT
  Age: 67 Year
  Sex: Male
  Weight: 72.5 kg

DRUGS (1)
  1. OBINUTUZUMAB [Suspect]
     Active Substance: OBINUTUZUMAB
     Indication: Chronic lymphocytic leukaemia
     Route: 042
     Dates: start: 20220831

REACTIONS (7)
  - Anaphylactic reaction [Unknown]
  - Endotracheal intubation [Unknown]
  - Infusion related reaction [Recovered/Resolved]
  - Respiratory symptom [Unknown]
  - Pneumonia [Fatal]
  - Septic shock [Fatal]
  - Multiple organ dysfunction syndrome [Fatal]

NARRATIVE: CASE EVENT DATE: 20220831
